FAERS Safety Report 9276393 (Version 2)
Quarter: 2013Q2

REPORT INFORMATION
  Report Type: Spontaneous
  Country: US (occurrence: US)
  Receive Date: 20130507
  Receipt Date: 20130528
  Transmission Date: 20140414
  Serious: Yes (Death)
  Sender: FDA-Public Use
  Company Number: US-GLAXOSMITHKLINE-A1022572A

PATIENT
  Age: 56 Year
  Sex: Male

DRUGS (22)
  1. VOTRIENT [Suspect]
     Indication: SOFT TISSUE CANCER
     Dosage: 600MG PER DAY
     Route: 048
     Dates: start: 20130215, end: 20130419
  2. TRAMADOL [Concomitant]
  3. IBUPROFEN [Concomitant]
  4. AMLODIPINE + BENAZEPRIL [Concomitant]
  5. VITAMIN C [Concomitant]
  6. VITAMIN B COMPLEX [Concomitant]
  7. FISH OIL [Concomitant]
  8. COQ-10 [Concomitant]
  9. POTASSIUM [Concomitant]
  10. LORATADINE [Concomitant]
  11. TESTOSTERONE TRANSDERMAL [Concomitant]
  12. OXYCODONE [Concomitant]
  13. CEPHALEXIN [Concomitant]
  14. SULFAMETHOXAZOLE + TRIMETHOPRIM [Concomitant]
  15. DOXYCYCLINE [Concomitant]
  16. POTASSIUM CHLORIDE [Concomitant]
  17. FUROSEMIDE [Concomitant]
  18. SERTRALINE [Concomitant]
  19. COMPAZINE [Concomitant]
  20. LIDOCAINE + PRILOCAINE [Concomitant]
  21. GEMCITABINE [Concomitant]
  22. TAXOTERE [Concomitant]

REACTIONS (8)
  - Leiomyosarcoma [Fatal]
  - Metastases to lung [Fatal]
  - Disease progression [Unknown]
  - Pleural effusion [Unknown]
  - Dyspnoea [Unknown]
  - Decreased appetite [Unknown]
  - General physical health deterioration [Unknown]
  - Hospice care [Unknown]
